FAERS Safety Report 12419712 (Version 1)
Quarter: 2016Q2

REPORT INFORMATION
  Report Type: Spontaneous
  Country: SV (occurrence: SV)
  Receive Date: 20160531
  Receipt Date: 20160531
  Transmission Date: 20160815
  Serious: Yes (Life-Threatening)
  Sender: FDA-Public Use
  Company Number: SV-GLAXOSMITHKLINE-SV2016GSK075172

PATIENT
  Age: 6 Year
  Sex: Male

DRUGS (1)
  1. VENTOLIN [Suspect]
     Active Substance: ALBUTEROL SULFATE
     Indication: PRODUCT USED FOR UNKNOWN INDICATION
     Dosage: 10 DF, QID, DROP(S)
     Dates: start: 20160502, end: 20160502

REACTIONS (5)
  - Cough [Recovered/Resolved]
  - Feeling of despair [Recovered/Resolved]
  - Crying [Recovered/Resolved]
  - Haemodynamic instability [Unknown]
  - Tachycardia [Recovered/Resolved]

NARRATIVE: CASE EVENT DATE: 20160502
